FAERS Safety Report 4587066-3 (Version None)
Quarter: 2005Q1

REPORT INFORMATION
  Report Type: 
  Country: None (occurrence: None)
  Receive Date: 20050218
  Receipt Date: 20050210
  Transmission Date: 20050727
  Serious: Yes (Hospitalization, Other)
  Sender: FDA-Public Use
  Company Number: PHEH2005US01993

PATIENT
  Age: 57 Year
  Sex: Female

DRUGS (2)
  1. DIOVAN HCT [Suspect]
  2. REBIF /NET/ [Suspect]

REACTIONS (5)
  - BLOOD POTASSIUM DECREASED [None]
  - ELECTROLYTE IMBALANCE [None]
  - HYPOKALAEMIA [None]
  - MULTIPLE SCLEROSIS [None]
  - PYREXIA [None]
